FAERS Safety Report 6160637-9 (Version None)
Quarter: 2009Q2

REPORT INFORMATION
  Report Type: 
  Country: None (occurrence: None)
  Receive Date: 20090420
  Receipt Date: 20090408
  Transmission Date: 20091009
  Serious: Yes (Death)
  Sender: FDA-Public Use
  Company Number: JP-ABBOTT-09P-087-0567239-00

PATIENT
  Age: 87 Year
  Sex: Male

DRUGS (2)
  1. LEUPLIN SR FOR INJECTION 11.25 MG [Suspect]
     Indication: PROSTATE CANCER STAGE II
     Route: 058
     Dates: start: 20061017, end: 20070921
  2. LEUPLIN SR FOR INJECTION 11.25 MG [Suspect]
     Dates: end: 20061017

REACTIONS (5)
  - BENIGN PROSTATIC HYPERPLASIA [None]
  - DYSURIA [None]
  - NEUROGENIC BLADDER [None]
  - RECTAL CANCER [None]
  - RESIDUAL URINE [None]
